FAERS Safety Report 13857357 (Version 2)
Quarter: 2017Q4

REPORT INFORMATION
  Report Type: Report from Study
  Country: None (occurrence: US)
  Receive Date: 20170810
  Receipt Date: 20171003
  Transmission Date: 20180320
  Serious: Yes (Hospitalization)
  Sender: FDA-Public Use
  Company Number: US-VIFOR (INTERNATIONAL) INC.-VIT-2017-08502

PATIENT
  Age: 76 Year
  Sex: Female
  Weight: 59.02 kg

DRUGS (13)
  1. GABAPENTIN. [Concomitant]
     Active Substance: GABAPENTIN
  2. MEXIUM [Concomitant]
  3. DOCUSATE SODIUM. [Concomitant]
     Active Substance: DOCUSATE SODIUM
  4. TOBRAMYCIN. [Concomitant]
     Active Substance: TOBRAMYCIN
  5. VELTASSA [Suspect]
     Active Substance: PATIROMER
     Indication: HYPERKALAEMIA
     Route: 048
     Dates: start: 20170503
  6. MECLIZINE [Concomitant]
     Active Substance: MECLIZINE HYDROCHLORIDE
  7. PARACETAMOL [Concomitant]
     Active Substance: ACETAMINOPHEN
  8. MAGNESIUM [Concomitant]
     Active Substance: MAGNESIUM
  9. DULOXETINE. [Concomitant]
     Active Substance: DULOXETINE
  10. ONDANSETRON [Concomitant]
     Active Substance: ONDANSETRON
  11. METOPROLOL. [Concomitant]
     Active Substance: METOPROLOL
  12. METHADONE [Concomitant]
     Active Substance: METHADONE HYDROCHLORIDE
  13. MEGESTROL [Concomitant]
     Active Substance: MEGESTROL

REACTIONS (2)
  - Peripheral swelling [Unknown]
  - Thrombosis [Recovered/Resolved]

NARRATIVE: CASE EVENT DATE: 20170719
